FAERS Safety Report 23040223 (Version 1)
Quarter: 2023Q4

REPORT INFORMATION
  Report Type: Spontaneous
  Country: DE (occurrence: DE)
  Receive Date: 20231006
  Receipt Date: 20231006
  Transmission Date: 20240110
  Serious: Yes (Other)
  Sender: FDA-Public Use
  Company Number: DE-EMBRYOTOX-202204385

PATIENT
  Age: 1 Day
  Sex: Male
  Weight: 2.32 kg

DRUGS (8)
  1. LORATADINE [Suspect]
     Active Substance: LORATADINE
     Indication: Hypersensitivity
     Dosage: 10 MILLIGRAM DAILY; 10 [MG/D ]
     Dates: start: 20220204, end: 20221105
  2. PROGESTERONE [Concomitant]
     Active Substance: PROGESTERONE
     Indication: Assisted fertilisation
     Dosage: 600 MILLIGRAM DAILY; 600 [MG/D ]
  3. novalgin [Concomitant]
     Indication: Pain
     Dosage: 1500 [MG/D ]/ 500-1500 MG/D
     Dates: start: 20220204, end: 20220329
  4. IBUPROFEN [Concomitant]
     Active Substance: IBUPROFEN
     Indication: Pain
     Dosage: 800 [MG/D ]/ TAKEN AS NEEDED, 400-800 MG/D
     Route: 065
  5. FOSTER [Concomitant]
     Active Substance: BECLOMETHASONE\FORMOTEROL
     Indication: Asthma
     Dosage: 400 [UG/D ] / 12 [UG/D ]
  6. PREDNISOLONE [Concomitant]
     Active Substance: PREDNISOLONE
     Indication: Asthma
     Dosage: 20 MILLIGRAM DAILY; 20 [MG/D ]
  7. BUDESONIDE [Concomitant]
     Active Substance: BUDESONIDE
     Indication: Asthma
     Dosage: .4 MILLIGRAM DAILY; 0.4 [MG/D ], BUDIAIR 0,2 MG
  8. DINOPROSTONE [Concomitant]
     Active Substance: DINOPROSTONE
     Indication: Labour induction
     Dosage: PROPESS 10 MG VAGINAL INSERT

REACTIONS (2)
  - Small for dates baby [Recovered/Resolved]
  - Foetal exposure during pregnancy [Unknown]

NARRATIVE: CASE EVENT DATE: 20221101
